FAERS Safety Report 23723722 (Version 2)
Quarter: 2024Q3

REPORT INFORMATION
  Report Type: Spontaneous
  Country: CA (occurrence: CA)
  Receive Date: 20240409
  Receipt Date: 20240917
  Transmission Date: 20241017
  Serious: Yes (Other)
  Sender: BRACCO
  Company Number: CA-BRACCO-2024CA01838

PATIENT
  Age: 23 Year
  Sex: Male

DRUGS (1)
  1. MULTIHANCE [Suspect]
     Active Substance: GADOBENATE DIMEGLUMINE
     Indication: Magnetic resonance imaging
     Dosage: 18 ML, SINGLE
     Route: 042
     Dates: start: 20240405, end: 20240405

REACTIONS (2)
  - Hypothermia [Unknown]
  - Tremor [Unknown]

NARRATIVE: CASE EVENT DATE: 20240405
